FAERS Safety Report 5204166-5 (Version None)
Quarter: 2007Q1

REPORT INFORMATION
  Report Type: 
  Country: None (occurrence: None)
  Receive Date: 20070110
  Receipt Date: 20051222
  Transmission Date: 20070707
  Serious: No
  Sender: FDA-Public Use
  Company Number: US-BRISTOL-MYERS SQUIBB COMPANY-13226303

PATIENT
  Sex: Male

DRUGS (14)
  1. ABILIFY [Suspect]
     Indication: MAJOR DEPRESSION
     Dates: start: 20051120
  2. ABILIFY [Suspect]
     Indication: PSYCHOTIC DISORDER
     Dates: start: 20051120
  3. ABILIFY [Suspect]
     Indication: POST-TRAUMATIC STRESS DISORDER
     Dates: start: 20051120
  4. ABILIFY [Suspect]
     Indication: ANXIETY
     Dates: start: 20051120
  5. ABILIFY [Suspect]
     Indication: PANIC ATTACK
     Dates: start: 20051120
  6. ABILIFY [Suspect]
     Indication: SLEEP DISORDER
     Dates: start: 20051120
  7. DOCUSATE SODIUM [Concomitant]
  8. GABITRIL [Concomitant]
  9. CLONAZEPAM [Concomitant]
  10. GLIMEPIRIDE [Concomitant]
  11. METFORMIN HCL [Concomitant]
  12. ACETAMINOPHEN [Concomitant]
  13. FISH OIL [Concomitant]
  14. ASPIRIN [Concomitant]

REACTIONS (7)
  - BALANCE DISORDER [None]
  - BLOOD GLUCOSE INCREASED [None]
  - BLOOD PRESSURE INCREASED [None]
  - CONSTIPATION [None]
  - DROOLING [None]
  - FLUSHING [None]
  - TREMOR [None]
